FAERS Safety Report 5088691-6 (Version None)
Quarter: 2006Q3

REPORT INFORMATION
  Report Type: 
  Country: None (occurrence: None)
  Receive Date: 20060822
  Receipt Date: 20060809
  Transmission Date: 20061208
  Serious: Yes (Hospitalization, Other)
  Sender: FDA-Public Use
  Company Number: 29710

PATIENT
  Age: 79 Year
  Sex: Female

DRUGS (1)
  1. LEUCOVORIN CALCIUM [Suspect]
     Indication: COLORECTAL CANCER STAGE III
     Dates: start: 20060510

REACTIONS (5)
  - ANAPHYLACTIC SHOCK [None]
  - CARDIAC ARREST [None]
  - DRUG INEFFECTIVE [None]
  - MALAISE [None]
  - RESPIRATORY ARREST [None]
